FAERS Safety Report 15463510 (Version 3)
Quarter: 2019Q2

REPORT INFORMATION
  Report Type: Spontaneous
  Country: US (occurrence: US)
  Receive Date: 20181004
  Receipt Date: 20190604
  Transmission Date: 20190711
  Serious: Yes (Other)
  Sender: FDA-Public Use
  Company Number: US-ASTRAZENECA-2018SF28699

PATIENT
  Age: 875 Month
  Sex: Female
  Weight: 66.2 kg

DRUGS (29)
  1. NEXIUM [Suspect]
     Active Substance: ESOMEPRAZOLE MAGNESIUM
     Indication: GASTROOESOPHAGEAL REFLUX DISEASE
     Route: 048
     Dates: start: 2005, end: 2016
  2. DICYCLOMINE [Concomitant]
     Active Substance: DICYCLOMINE HYDROCHLORIDE
  3. LEVOTHYROXINE. [Concomitant]
     Active Substance: LEVOTHYROXINE
  4. HYDROCODONE [Concomitant]
     Active Substance: HYDROCODONE
  5. NEXIUM [Suspect]
     Active Substance: ESOMEPRAZOLE MAGNESIUM
     Indication: GASTROOESOPHAGEAL REFLUX DISEASE
     Route: 048
     Dates: start: 2006, end: 2015
  6. HYDROCHLOROTHIAZIDE. [Concomitant]
     Active Substance: HYDROCHLOROTHIAZIDE
  7. AMITIZA [Concomitant]
     Active Substance: LUBIPROSTONE
  8. LISINOPRIL. [Concomitant]
     Active Substance: LISINOPRIL
  9. NITROSTAT [Concomitant]
     Active Substance: NITROGLYCERIN
  10. CELEBREX [Concomitant]
     Active Substance: CELECOXIB
  11. FAMOTIDINE. [Concomitant]
     Active Substance: FAMOTIDINE
  12. NEXIUM [Suspect]
     Active Substance: ESOMEPRAZOLE MAGNESIUM
     Indication: GASTROOESOPHAGEAL REFLUX DISEASE
     Route: 048
     Dates: start: 20060703
  13. METOCLOPRAMIDE. [Concomitant]
     Active Substance: METOCLOPRAMIDE
  14. HYDROCHLOROTHIAZIDE. [Concomitant]
     Active Substance: HYDROCHLOROTHIAZIDE
  15. KLOR-CON [Concomitant]
     Active Substance: POTASSIUM CHLORIDE
  16. ASPIRIN. [Concomitant]
     Active Substance: ASPIRIN
  17. AMLODIPINE BESYLATE. [Concomitant]
     Active Substance: AMLODIPINE BESYLATE
  18. AMLODIPINE [Concomitant]
     Active Substance: AMLODIPINE BESYLATE
  19. PROAIR HFA [Concomitant]
     Active Substance: ALBUTEROL SULFATE
  20. MELOXICAM. [Concomitant]
     Active Substance: MELOXICAM
  21. VITAMIN D [Concomitant]
     Active Substance: VITAMIN D NOS
  22. CIPRODEX [Concomitant]
     Active Substance: CIPROFLOXACIN HYDROCHLORIDE\DEXAMETHASONE
  23. AMLODIPINE [Concomitant]
     Active Substance: AMLODIPINE BESYLATE
  24. SIMVASTATIN. [Concomitant]
     Active Substance: SIMVASTATIN
  25. VYTORIN [Concomitant]
     Active Substance: EZETIMIBE\SIMVASTATIN
  26. ALBUTEROL. [Concomitant]
     Active Substance: ALBUTEROL
  27. TRAMADOL. [Concomitant]
     Active Substance: TRAMADOL
  28. MELOXICAM. [Concomitant]
     Active Substance: MELOXICAM
  29. LEVOTHYROXINE. [Concomitant]
     Active Substance: LEVOTHYROXINE

REACTIONS (4)
  - Acute kidney injury [Not Recovered/Not Resolved]
  - Nephrogenic anaemia [Unknown]
  - Renal failure [Unknown]
  - Chronic kidney disease [Not Recovered/Not Resolved]

NARRATIVE: CASE EVENT DATE: 201504
